FAERS Safety Report 15785712 (Version 2)
Quarter: 2019Q1

REPORT INFORMATION
  Report Type: Report from Study
  Country: US (occurrence: US)
  Receive Date: 20190103
  Receipt Date: 20190205
  Transmission Date: 20190417
  Serious: Yes (Hospitalization)
  Sender: FDA-Public Use
  Company Number: US-SA-2017SA001377

PATIENT
  Age: 85 Year
  Sex: Female

DRUGS (5)
  1. INSULIN GLARGINE [Suspect]
     Active Substance: INSULIN GLARGINE
     Dosage: 13 U, QD
     Route: 058
  2. INSULIN GLARGINE [Suspect]
     Active Substance: INSULIN GLARGINE
     Indication: TYPE 2 DIABETES MELLITUS
     Dosage: 13 U, QD
     Route: 058
     Dates: start: 20150701
  3. INSULIN GLARGINE [Suspect]
     Active Substance: INSULIN GLARGINE
     Dosage: 22 U, QD
  4. INSULIN GLARGINE [Suspect]
     Active Substance: INSULIN GLARGINE
     Dosage: UNK UNK,QD
     Route: 058
     Dates: start: 2015
  5. INSULIN GLARGINE [Suspect]
     Active Substance: INSULIN GLARGINE
     Dosage: 12 U, QD

REACTIONS (4)
  - Upper limb fracture [Recovering/Resolving]
  - Blood glucose increased [Not Recovered/Not Resolved]
  - Fracture [Recovering/Resolving]
  - Road traffic accident [Unknown]

NARRATIVE: CASE EVENT DATE: 20150929
